FAERS Safety Report 5974140-X (Version None)
Quarter: 2008Q4

REPORT INFORMATION
  Report Type: 
  Country: None (occurrence: None)
  Receive Date: 20081201
  Receipt Date: 20081126
  Transmission Date: 20090506
  Serious: Yes (Congenital Anomaly, Other)
  Sender: FDA-Public Use
  Company Number: US-PFIZER INC-001-0073-M0100204

PATIENT
  Sex: Male

DRUGS (2)
  1. DILANTIN [Suspect]
     Indication: EPILEPSY
     Route: 064
     Dates: start: 20000301, end: 20000601
  2. GABITRIL [Suspect]
     Indication: EPILEPSY
     Route: 064
     Dates: start: 20000301, end: 20000601

REACTIONS (3)
  - CONGENITAL ANOMALY [None]
  - CONGENITAL CYSTIC KIDNEY DISEASE [None]
  - DRUG EXPOSURE DURING PREGNANCY [None]
